FAERS Safety Report 6654543-0 (Version None)
Quarter: 2010Q1

REPORT INFORMATION
  Report Type: 
  Country: None (occurrence: None)
  Receive Date: 20100326
  Receipt Date: 20100316
  Transmission Date: 20100710
  Serious: Yes (Other)
  Sender: FDA-Public Use
  Company Number: US-PFIZER INC-2010034353

PATIENT
  Sex: Male

DRUGS (6)
  1. LYRICA [Suspect]
     Indication: HIV PERIPHERAL NEUROPATHY
     Dosage: UNK
  2. RESTORIL [Concomitant]
     Dosage: 30 MG, DAILY
  3. TOPROL-XL [Concomitant]
     Dosage: 50 MG, DAILY
  4. COMBIVIR [Concomitant]
     Dosage: UNK, 2X/DAY
  5. SUSTIVA [Concomitant]
     Dosage: UNK, DAILY
  6. CYMBALTA [Concomitant]
     Dosage: UNK, DAILY

REACTIONS (4)
  - DRUG INEFFECTIVE [None]
  - FULL BLOOD COUNT ABNORMAL [None]
  - INCORRECT DOSE ADMINISTERED [None]
  - NATURAL KILLER T CELL COUNT DECREASED [None]
